FAERS Safety Report 17833707 (Version 1)
Quarter: 2020Q2

REPORT INFORMATION
  Report Type: Spontaneous
  Country: US (occurrence: US)
  Receive Date: 20200527
  Receipt Date: 20200527
  Transmission Date: 20200714
  Serious: Yes (Life-Threatening, Other)
  Sender: FDA-Public Use
  Company Number: None

PATIENT
  Age: 27 Year
  Sex: Female
  Weight: 57.2 kg

DRUGS (4)
  1. BENADRYL 25 MG IV ONCE [Concomitant]
     Dates: start: 20200525, end: 20200525
  2. 1 L NS BOLUS ONCE [Concomitant]
     Dates: start: 20200525, end: 20200525
  3. SOLUMEDROL 40 MG IV ONCE [Concomitant]
     Dates: start: 20200525, end: 20200525
  4. FERRLECIT [Suspect]
     Active Substance: SODIUM FERRIC GLUCONATE COMPLEX
     Indication: ANAEMIA OF PREGNANCY
     Dosage: ?          OTHER FREQUENCY:ONCE;?
     Route: 041

REACTIONS (5)
  - Pruritus [None]
  - Burning sensation [None]
  - Infusion related reaction [None]
  - Arthralgia [None]
  - Pain in extremity [None]

NARRATIVE: CASE EVENT DATE: 20200525
